FAERS Safety Report 24535644 (Version 1)
Quarter: 2024Q4

REPORT INFORMATION
  Report Type: Report from Study
  Country: US (occurrence: US)
  Receive Date: 20241022
  Receipt Date: 20241022
  Transmission Date: 20250115
  Serious: Yes (Other)
  Sender: JAZZ
  Company Number: US-JAZZ-2021-US-004500

PATIENT
  Age: 64 Year
  Sex: Male

DRUGS (38)
  1. XYREM [Suspect]
     Active Substance: SODIUM OXYBATE
     Indication: Narcolepsy
     Dosage: 3.75 GRAM, BID
     Route: 048
     Dates: start: 20121010
  2. XYREM [Suspect]
     Active Substance: SODIUM OXYBATE
     Indication: Cataplexy
     Dosage: 3.25 GRAM, BID
  3. XYREM [Suspect]
     Active Substance: SODIUM OXYBATE
     Indication: Somnolence
  4. VOLTAREN [Concomitant]
     Active Substance: DICLOFENAC SODIUM
     Dosage: UNK
  5. CYANOCOBALAMIN [Concomitant]
     Active Substance: CYANOCOBALAMIN
     Dosage: 1,000 MCG/ML
     Dates: start: 20101001
  6. SYNTHROID [Concomitant]
     Active Substance: LEVOTHYROXINE SODIUM
     Dosage: 0000
     Dates: start: 20060901
  7. TESTOSTERONE [Concomitant]
     Active Substance: TESTOSTERONE
     Dosage: 200 MG/ML
     Dates: start: 20100901
  8. FOLIC ACID [Concomitant]
     Active Substance: FOLIC ACID
     Dosage: 0000
     Dates: start: 20151214
  9. PROVENTIL HFA [Concomitant]
     Active Substance: ALBUTEROL SULFATE
     Dosage: 0000
     Dates: start: 20151214
  10. VITAMIN D3 [Concomitant]
     Active Substance: CHOLECALCIFEROL
     Dosage: 5,000 UNIT TABLET
     Dates: start: 20101203
  11. EPIPEN [Concomitant]
     Active Substance: EPINEPHRINE
     Dosage: 0.3 MG AUTO-INJCT
     Dates: start: 20150223
  12. REQUIP [Concomitant]
     Active Substance: ROPINIROLE HYDROCHLORIDE
     Dosage: 0000
     Dates: start: 20170312
  13. LASIX [Concomitant]
     Active Substance: FUROSEMIDE
     Dosage: 0000
     Dates: start: 20170401
  14. DESONIDE [Concomitant]
     Active Substance: DESONIDE
     Dosage: 0000
     Dates: start: 20170313
  15. CRESTOR [Concomitant]
     Active Substance: ROSUVASTATIN CALCIUM
     Dosage: 0000
     Dates: start: 20180207
  16. ELIQUIS [Concomitant]
     Active Substance: APIXABAN
     Dosage: 0000
     Dates: start: 20180306
  17. ASPIRIN [Concomitant]
     Active Substance: ASPIRIN
     Dosage: 0000
     Dates: start: 20180307
  18. HUMULIN R [Concomitant]
     Active Substance: INSULIN HUMAN
     Dosage: 500 UNITS/ML VIAL
     Dates: start: 20180403
  19. CLAVULANATE POTASSIUM [Concomitant]
     Active Substance: CLAVULANATE POTASSIUM
     Dosage: 0000
     Dates: start: 20180402
  20. TOPROL XL [Concomitant]
     Active Substance: METOPROLOL SUCCINATE
     Dosage: 0000
     Dates: start: 20200204
  21. SUNOSI [Concomitant]
     Active Substance: SOLRIAMFETOL
     Dosage: 0000
     Dates: start: 20200128
  22. SINGULAIR [Concomitant]
     Active Substance: MONTELUKAST SODIUM
     Dosage: 0000
     Dates: start: 20190328
  23. METOLAZONE [Concomitant]
     Active Substance: METOLAZONE
     Dosage: 0000
     Dates: start: 20200330
  24. METHOCARBAMOL [Concomitant]
     Active Substance: METHOCARBAMOL
     Dosage: UNK
     Dates: start: 20200605
  25. TRULICITY [Concomitant]
     Active Substance: DULAGLUTIDE
     Dosage: 4.5 MG/0.5 ML PEN
     Dates: start: 20210818
  26. NOVOLOG [Concomitant]
     Active Substance: INSULIN ASPART
     Dosage: 80 UNIT
  27. NITROSTAT [Concomitant]
     Active Substance: NITROGLYCERIN
  28. COLACE [Concomitant]
     Active Substance: DOCUSATE SODIUM
  29. ATROVENT [Concomitant]
     Active Substance: IPRATROPIUM BROMIDE
     Dosage: 42 MCG (0.06%) SPRAY, NON-AEROSOL
  30. MYCOSTATIN [Concomitant]
     Active Substance: NYSTATIN
     Dosage: 1000,000 UNIT/GRAM
  31. VITAMIN C [Concomitant]
     Active Substance: ASCORBIC ACID
  32. KRILL OIL [Concomitant]
     Active Substance: DIETARY SUPPLEMENT\KRILL OIL
     Dosage: UNK
  33. KLOR-CON [Concomitant]
     Active Substance: POTASSIUM CHLORIDE
  34. TYLENOL [Concomitant]
     Active Substance: ACETAMINOPHEN
  35. LISINOPRIL [Concomitant]
     Active Substance: LISINOPRIL
     Dosage: UNK
  36. QVAR REDIHALER [Concomitant]
     Active Substance: BECLOMETHASONE DIPROPIONATE
     Dosage: UNK
  37. TAMSULOSIN HYDROCHLORIDE [Concomitant]
     Active Substance: TAMSULOSIN HYDROCHLORIDE
     Dosage: UNK
     Dates: start: 20240201
  38. PANTOPRAZOLE [Concomitant]
     Active Substance: PANTOPRAZOLE
     Dosage: UNK
     Dates: start: 20241001

REACTIONS (5)
  - Atrial fibrillation [Unknown]
  - Endodontic procedure [Unknown]
  - Nasal dryness [Unknown]
  - Polycythaemia [Unknown]
  - High density lipoprotein decreased [Unknown]

NARRATIVE: CASE EVENT DATE: 20231201
